FAERS Safety Report 8515665-2 (Version None)
Quarter: 2012Q3

REPORT INFORMATION
  Report Type: 
  Country: None (occurrence: None)
  Receive Date: 20120717
  Receipt Date: 20120711
  Transmission Date: 20120928
  Serious: Yes (Hospitalization, Other)
  Sender: FDA-Public Use
  Company Number: PHFR2012GB003469

PATIENT
  Sex: Female

DRUGS (2)
  1. CLOZARIL [Suspect]
     Indication: SCHIZOPHRENIA
     Dosage: 250 MG,(100 MG IN THE MORNING AND 150 MG AT NIGHT)
     Route: 048
     Dates: start: 20120511
  2. CLOZARIL [Suspect]
     Route: 048
     Dates: end: 20120711

REACTIONS (11)
  - URINARY TRACT INFECTION [None]
  - DECREASED APPETITE [None]
  - WEIGHT DECREASED [None]
  - VOMITING [None]
  - ASTHENIA [None]
  - HYPOPHAGIA [None]
  - MENTAL DISORDER [None]
  - MALAISE [None]
  - RESPIRATORY TRACT INFECTION [None]
  - DEHYDRATION [None]
  - DIABETES MELLITUS [None]
